FAERS Safety Report 12124858 (Version 2)
Quarter: 2016Q1

REPORT INFORMATION
  Report Type: Report from Study
  Country: BE (occurrence: BE)
  Receive Date: 20160229
  Receipt Date: 20160309
  Transmission Date: 20160526
  Serious: Yes (Hospitalization)
  Sender: FDA-Public Use
  Company Number: BE-BEH-2016059322

PATIENT
  Age: 5 Year
  Sex: Male

DRUGS (5)
  1. HIZENTRA [Suspect]
     Active Substance: HUMAN IMMUNOGLOBULIN G
     Dosage: ADMINISTRATION: SUBCUTANEOUSLY, LEFT OR RIGHT IN THE ABDOMEN
     Route: 058
     Dates: start: 20150709
  2. HIZENTRA [Suspect]
     Active Substance: HUMAN IMMUNOGLOBULIN G
     Dosage: ADMINISTRATION: SUBCUTANEOUSLY, LEFT OR RIGHT IN THE ABDOMEN
     Route: 058
     Dates: start: 20151102
  3. HIZENTRA [Suspect]
     Active Substance: HUMAN IMMUNOGLOBULIN G
     Dosage: ADMINISTRATION: SUBCUTANEOUSLY, LEFT OR RIGHT IN THE ABDOMEN
     Route: 058
     Dates: start: 20150717
  4. HIZENTRA [Suspect]
     Active Substance: HUMAN IMMUNOGLOBULIN G
     Indication: PRIMARY IMMUNODEFICIENCY SYNDROME
     Dosage: ADMINISTRATION: SUBCUTANEOUSLY, LEFT OR RIGHT IN THE ABDOMEN
     Route: 058
     Dates: start: 20150701
  5. OMEPRAZOLE. [Concomitant]
     Active Substance: OMEPRAZOLE

REACTIONS (2)
  - Fatigue [Recovered/Resolved]
  - Pneumonia [Recovered/Resolved]

NARRATIVE: CASE EVENT DATE: 201511
